FAERS Safety Report 4417037-9 (Version None)
Quarter: 2004Q3

REPORT INFORMATION
  Report Type: 
  Country: None (occurrence: None)
  Receive Date: 20040802
  Receipt Date: 20040719
  Transmission Date: 20050211
  Serious: Yes (Hospitalization)
  Sender: FDA-Public Use
  Company Number: 200418819BWH

PATIENT
  Age: 39 Year
  Sex: Male
  Weight: 113.3993 kg

DRUGS (6)
  1. CIPROFLOXACIN HCL [Suspect]
     Indication: OSTEOMYELITIS
     Dosage: 1500 MG, TOTAL DAILY, ORAL
     Route: 048
     Dates: start: 20040201, end: 20040301
  2. OXYCONTIN [Concomitant]
  3. ELAVIL [Concomitant]
  4. CELEBREX [Concomitant]
  5. ZANTAC [Concomitant]
  6. ZOSYN [Concomitant]

REACTIONS (7)
  - CONDITION AGGRAVATED [None]
  - IMPAIRED WORK ABILITY [None]
  - PAIN IN EXTREMITY [None]
  - PETECHIAE [None]
  - PLEURAL EFFUSION [None]
  - PNEUMONIA [None]
  - PULMONARY MICROEMBOLI [None]
